FAERS Safety Report 8029704-9 (Version None)
Quarter: 2012Q1

REPORT INFORMATION
  Report Type: 
  Country: None (occurrence: None)
  Receive Date: 20120109
  Receipt Date: 20120104
  Transmission Date: 20120608
  Serious: Yes (Hospitalization, Congenital Anomaly, Other)
  Sender: FDA-Public Use
  Company Number: US-PFIZER INC-2011160621

PATIENT
  Sex: Male
  Weight: 3.485 kg

DRUGS (3)
  1. KLONOPIN [Concomitant]
     Indication: ANXIETY
     Dosage: 0.5 MG, 1X/DAY
     Route: 064
  2. MULTI-VITAMINS [Concomitant]
     Dosage: UNK
     Route: 064
     Dates: start: 20101002
  3. ZOLOFT [Suspect]
     Indication: ANXIETY
     Dosage: 50 MG, HALF EVERY DAY
     Route: 064
     Dates: start: 20091022

REACTIONS (12)
  - MATERNAL EXPOSURE TIMING UNSPECIFIED [None]
  - DACRYOSTENOSIS CONGENITAL [None]
  - PULMONARY OEDEMA [None]
  - LAEVOCARDIA [None]
  - RIGHT VENTRICLE OUTFLOW TRACT OBSTRUCTION [None]
  - RIGHT AORTIC ARCH [None]
  - TRICUSPID VALVE INCOMPETENCE [None]
  - FALLOT'S TETRALOGY [None]
  - CONGENITAL ARTERIAL MALFORMATION [None]
  - ATRIAL SEPTAL DEFECT [None]
  - PATENT DUCTUS ARTERIOSUS [None]
  - ATELECTASIS [None]
